FAERS Safety Report 14293361 (Version 1)
Quarter: 2017Q4

REPORT INFORMATION
  Report Type: Spontaneous
  Country: AR (occurrence: AR)
  Receive Date: 20171215
  Receipt Date: 20171215
  Transmission Date: 20180321
  Serious: Yes (Hospitalization)
  Sender: FDA-Public Use
  Company Number: AR-BIOMARINAP-AR-2017-116384

PATIENT
  Age: 13 Year
  Sex: Male
  Weight: 24 kg

DRUGS (1)
  1. ALDURAZYME [Suspect]
     Active Substance: LARONIDASE
     Indication: MUCOPOLYSACCHARIDOSIS I
     Dosage: 0.58 MG/KG, UNK
     Route: 041
     Dates: start: 2007

REACTIONS (2)
  - Road traffic accident [Unknown]
  - Multiple injuries [Unknown]

NARRATIVE: CASE EVENT DATE: 201710
